FAERS Safety Report 4360663-6 (Version None)
Quarter: 2004Q2

REPORT INFORMATION
  Report Type: 
  Country: None (occurrence: None)
  Receive Date: 20040514
  Receipt Date: 20040507
  Transmission Date: 20050107
  Serious: Yes (Other)
  Sender: FDA-Public Use
  Company Number: 2004212604US

PATIENT
  Age: 37 Year
  Sex: Female

DRUGS (1)
  1. LINEZOLID (LINEZOLID) SOLUTION, STERILE [Suspect]
     Indication: OSTEOMYELITIS

REACTIONS (8)
  - CYTOMEGALOVIRUS INFECTION [None]
  - DRUG TOXICITY [None]
  - ENTEROCOCCAL INFECTION [None]
  - GRAFT VERSUS HOST DISEASE [None]
  - LUNG INFILTRATION [None]
  - MULTI-ORGAN FAILURE [None]
  - PATHOGEN RESISTANCE [None]
  - PNEUMONIA CYTOMEGALOVIRAL [None]
